FAERS Safety Report 4731774-8 (Version None)
Quarter: 2005Q3

REPORT INFORMATION
  Report Type: 
  Country: None (occurrence: None)
  Receive Date: 20050725
  Receipt Date: 20040914
  Transmission Date: 20060218
  Serious: Yes (Other)
  Sender: FDA-Public Use
  Company Number: WAES 0404USA02384

PATIENT
  Age: 75 Year
  Sex: Female
  Weight: 66.2252 kg

DRUGS (15)
  1. VIOXX [Suspect]
     Dosage: PO
     Route: 048
     Dates: start: 19990101, end: 20000114
  2. ADVAIR DISKUS 100/50 [Concomitant]
  3. AZMACORT [Concomitant]
  4. CARDIZEM [Concomitant]
  5. CLARITIN [Concomitant]
  6. DONNATAL [Concomitant]
  7. MOTRIN [Concomitant]
  8. MYSOLINE [Concomitant]
  9. NORVASC [Concomitant]
  10. PREMARIN [Concomitant]
  11. ROBAXIN [Concomitant]
  12. SINGULAIR [Concomitant]
  13. SYNTHROID [Concomitant]
  14. ALBUTEROL [Concomitant]
  15. ISOSORBIDE [Concomitant]

REACTIONS (16)
  - ABDOMINAL PAIN UPPER [None]
  - ASTHENIA [None]
  - CHEST DISCOMFORT [None]
  - CONJUNCTIVITIS [None]
  - COUGH [None]
  - CRACKLES LUNG [None]
  - DIARRHOEA [None]
  - DRUG HYPERSENSITIVITY [None]
  - HEPATOMEGALY [None]
  - IRRITABLE BOWEL SYNDROME [None]
  - PHARYNGITIS [None]
  - PYREXIA [None]
  - RASH [None]
  - SINUSITIS [None]
  - URINARY TRACT INFECTION [None]
  - WEIGHT INCREASED [None]
